FAERS Safety Report 23953163 (Version 3)
Quarter: 2024Q3

REPORT INFORMATION
  Report Type: Spontaneous
  Country: CZ (occurrence: CZ)
  Receive Date: 20240608
  Receipt Date: 20240917
  Transmission Date: 20241017
  Serious: Yes (Other)
  Sender: TEVA
  Company Number: CZ-TEVA-VS-3206313

PATIENT
  Age: 85 Year
  Sex: Male

DRUGS (2)
  1. ETOPOSIDE [Suspect]
     Active Substance: ETOPOSIDE
     Indication: Anaplastic large cell lymphoma T- and null-cell types
     Route: 065
     Dates: end: 2023
  2. BRENTUXIMAB VEDOTIN [Concomitant]
     Active Substance: BRENTUXIMAB VEDOTIN
     Indication: Anaplastic large cell lymphoma T- and null-cell types
     Dosage: (WITHOUT REDUCTION IN A DOSE OF 1.8 MG/KG)
     Route: 065
     Dates: end: 2023

REACTIONS (2)
  - Thrombocytopenia [Unknown]
  - Myelosuppression [Unknown]
